FAERS Safety Report 5444799-4 (Version None)
Quarter: 2007Q3

REPORT INFORMATION
  Report Type: 
  Country: None (occurrence: None)
  Receive Date: 20070906
  Receipt Date: 20070321
  Transmission Date: 20080115
  Serious: No
  Sender: FDA-Public Use
  Company Number: A0644122A

PATIENT
  Age: 65 Year
  Sex: Female

DRUGS (3)
  1. REQUIP [Suspect]
     Indication: RESTLESS LEGS SYNDROME
     Dosage: 1MG AT NIGHT
     Route: 048
     Dates: start: 20050901
  2. ZANTAC 150 [Concomitant]
  3. XANAX [Concomitant]

REACTIONS (2)
  - DYSKINESIA [None]
  - NAUSEA [None]
